APPROVED DRUG PRODUCT: SOTALOL HYDROCHLORIDE
Active Ingredient: SOTALOL HYDROCHLORIDE
Strength: 80MG
Dosage Form/Route: TABLET;ORAL
Application: A075237 | Product #001
Applicant: NOVITIUM PHARMA LLC
Approved: May 1, 2000 | RLD: No | RS: No | Type: DISCN